FAERS Safety Report 12893032 (Version 1)
Quarter: 2016Q4

REPORT INFORMATION
  Report Type: Spontaneous
  Country: FR (occurrence: FR)
  Receive Date: 20161028
  Receipt Date: 20161028
  Transmission Date: 20170207
  Serious: Yes (Hospitalization, Other)
  Sender: FDA-Public Use
  Company Number: FR-INDIVIOR LIMITED-INDV-095956-2016

PATIENT
  Age: 45 Year
  Sex: Male
  Weight: 77 kg

DRUGS (4)
  1. SUBUTEX [Suspect]
     Active Substance: BUPRENORPHINE HYDROCHLORIDE
     Indication: PRODUCT USED FOR UNKNOWN INDICATION
     Dosage: UNK
     Route: 042
     Dates: start: 201608
  2. SUBUTEX [Suspect]
     Active Substance: BUPRENORPHINE HYDROCHLORIDE
     Dosage: 6 MG, TWICE A DAY
     Route: 065
     Dates: start: 2016
  3. HEROIN [Suspect]
     Active Substance: DIACETYLMORPHINE
     Indication: PRODUCT USED FOR UNKNOWN INDICATION
     Dosage: UNK (2 INJECTIONS)
     Route: 042
     Dates: start: 201608
  4. NICOTINE. [Suspect]
     Active Substance: NICOTINE
     Indication: PRODUCT USED FOR UNKNOWN INDICATION
     Dosage: UNK
     Route: 065

REACTIONS (8)
  - Endocarditis [Recovering/Resolving]
  - Drug abuse [Recovering/Resolving]
  - Splenic embolism [Unknown]
  - Intentional product use issue [Recovering/Resolving]
  - Drug dependence [Recovering/Resolving]
  - Product use issue [Unknown]
  - Renal embolism [Unknown]
  - Acute kidney injury [Unknown]
